FAERS Safety Report 6228777-3 (Version None)
Quarter: 2009Q2

REPORT INFORMATION
  Report Type: 
  Country: None (occurrence: None)
  Receive Date: 20090615
  Receipt Date: 20090604
  Transmission Date: 20091009
  Serious: Yes (Other)
  Sender: FDA-Public Use
  Company Number: AU-PFIZER INC-2009223085

PATIENT
  Age: 53 Year

DRUGS (3)
  1. ZOLOFT [Suspect]
     Indication: ANXIETY
     Dosage: 25 MG, UNK
     Dates: start: 20090601
  2. MIRTAZAPINE [Concomitant]
     Indication: ANXIETY
     Dosage: 7.5 MG, UNK
     Dates: start: 20090101
  3. NEO-MERCAZOLE TAB [Concomitant]
     Indication: BASEDOW'S DISEASE

REACTIONS (8)
  - DIARRHOEA [None]
  - DYSPHAGIA [None]
  - EYE SWELLING [None]
  - NERVOUSNESS [None]
  - PALPITATIONS [None]
  - PYREXIA [None]
  - SALIVARY HYPERSECRETION [None]
  - SWELLING FACE [None]
